FAERS Safety Report 16033255 (Version 1)
Quarter: 2019Q1

REPORT INFORMATION
  Report Type: Spontaneous
  Country: NL (occurrence: NL)
  Receive Date: 20190305
  Receipt Date: 20190305
  Transmission Date: 20190418
  Serious: Yes (Death)
  Sender: FDA-Public Use
  Company Number: NL-009507513-1902NLD010803

PATIENT
  Sex: Male
  Weight: 120 kg

DRUGS (1)
  1. JANUMET [Suspect]
     Active Substance: METFORMIN HYDROCHLORIDE\SITAGLIPTIN PHOSPHATE
     Indication: TYPE 2 DIABETES MELLITUS
     Dosage: 2 TIMES PER DAY ONE PIECE, LATER 1 TIME PER DAY 1 PIECE, LATER JANUVIA ONE TIME PER DAY 25 MG
     Route: 048
     Dates: start: 20100322

REACTIONS (1)
  - Renal impairment [Fatal]
